FAERS Safety Report 4675798-8 (Version None)
Quarter: 2005Q2

REPORT INFORMATION
  Report Type: 
  Country: None (occurrence: None)
  Receive Date: 20050527
  Receipt Date: 20020226
  Transmission Date: 20051028
  Serious: Yes (Hospitalization)
  Sender: FDA-Public Use
  Company Number: JP-SOLVAY-00305001808

PATIENT
  Age: 6002 Day
  Sex: Female
  Weight: 36.9 kg

DRUGS (6)
  1. CREON [Suspect]
     Indication: CYSTIC FIBROSIS PANCREATIC
     Dosage: DAILY DOSE: 1.68 GRAM(S)
     Route: 048
     Dates: start: 19961008, end: 19961014
  2. CREON [Suspect]
     Dosage: DAILY DOSE: 3.39 GRAM(S)
     Route: 048
     Dates: start: 19961015, end: 19961021
  3. CREON [Suspect]
     Dosage: DAILY DOSE: 6.75 GRAM(S)
     Route: 048
     Dates: start: 19961022, end: 19961028
  4. CREON [Suspect]
     Dosage: DAILY DOSE: 3.39 GRAM(S)
     Route: 048
     Dates: start: 19961029, end: 19961111
  5. CREON [Suspect]
     Dosage: DAILY DOSE: 6 GRAM(S)
     Route: 048
     Dates: start: 19961112, end: 19971020
  6. CREON [Suspect]
     Dosage: DAILY DOSE: 6 GRAM(S)
     Route: 048
     Dates: start: 19971110

REACTIONS (1)
  - BRONCHITIS ACUTE [None]
